FAERS Safety Report 8953554 (Version 1)
Quarter: 2012Q4

REPORT INFORMATION
  Report Type: 
  Country: US (occurrence: US)
  Receive Date: 20121206
  Receipt Date: 20121206
  Transmission Date: 20130627
  Serious: No
  Sender: FDA-Public Use
  Company Number: US-PFIZER INC-2012301655

PATIENT
  Sex: Female

DRUGS (2)
  1. REVATIO [Suspect]
     Dosage: 20 mg, 3x/day
     Route: 048
  2. LETAIRIS [Suspect]
     Dosage: UNK
     Route: 048

REACTIONS (6)
  - Activities of daily living impaired [Unknown]
  - Myalgia [Unknown]
  - Arthralgia [Unknown]
  - Asthenia [Unknown]
  - Muscle tightness [Unknown]
  - Headache [Unknown]
